FAERS Safety Report 14559115 (Version 1)
Quarter: 2018Q1

REPORT INFORMATION
  Report Type: Spontaneous
  Country: US (occurrence: US)
  Receive Date: 20180221
  Receipt Date: 20180221
  Transmission Date: 20180509
  Serious: No
  Sender: FDA-Public Use
  Company Number: US-BAYER-2018-028422

PATIENT

DRUGS (2)
  1. PHILLIPS DIGESTIVE HEALTH SUPPORT CHEWABLE PROBIOTIC [Suspect]
     Active Substance: PROBIOTICS NOS
  2. CIPRO [Suspect]
     Active Substance: CIPROFLOXACIN HYDROCHLORIDE

REACTIONS (4)
  - Diarrhoea [Recovered/Resolved with Sequelae]
  - Poor quality drug administered [Unknown]
  - Infection [Recovered/Resolved with Sequelae]
  - Frequent bowel movements [Recovered/Resolved with Sequelae]

NARRATIVE: CASE EVENT DATE: 20180106
